FAERS Safety Report 10742701 (Version 1)
Quarter: 2015Q1

REPORT INFORMATION
  Report Type: Spontaneous
  Country: US (occurrence: US)
  Receive Date: 20150127
  Receipt Date: 20150127
  Transmission Date: 20150721
  Serious: Yes (Other)
  Sender: FDA-Public Use
  Company Number: US-GLAXOSMITHKLINE-US2015GSK010297

PATIENT
  Sex: Male

DRUGS (2)
  1. VOTRIENT [Suspect]
     Active Substance: PAZOPANIB HYDROCHLORIDE
     Indication: RENAL CANCER
     Dosage: 800 MG, U
     Dates: start: 20141223
  2. VOTRIENT [Suspect]
     Active Substance: PAZOPANIB HYDROCHLORIDE
     Dosage: UNK, BID

REACTIONS (5)
  - Polycythaemia vera [Unknown]
  - Headache [Unknown]
  - Hyperhidrosis [Unknown]
  - Weight decreased [Unknown]
  - Abdominal pain upper [Unknown]
